FAERS Safety Report 24609404 (Version 2)
Quarter: 2024Q4

REPORT INFORMATION
  Report Type: Spontaneous
  Country: AT (occurrence: AT)
  Receive Date: 20241112
  Receipt Date: 20241201
  Transmission Date: 20250115
  Serious: Yes (Death, Other)
  Sender: ALEXION PHARMACEUTICALS
  Company Number: AT-ASTRAZENECA-202410EEA026302AT

PATIENT

DRUGS (4)
  1. TRUQAP [Suspect]
     Active Substance: CAPIVASERTIB
  2. TRUQAP [Suspect]
     Active Substance: CAPIVASERTIB
  3. TRUQAP [Suspect]
     Active Substance: CAPIVASERTIB
  4. TRUQAP [Suspect]
     Active Substance: CAPIVASERTIB

REACTIONS (5)
  - Death [Fatal]
  - Lymphangiosis carcinomatosa [Fatal]
  - Diarrhoea [Recovered/Resolved]
  - Rash [Unknown]
  - Nausea [Unknown]
